FAERS Safety Report 11393937 (Version 2)
Quarter: 2015Q4

REPORT INFORMATION
  Report Type: Spontaneous
  Country: US (occurrence: US)
  Receive Date: 20150819
  Receipt Date: 20151020
  Transmission Date: 20160304
  Serious: No
  Sender: FDA-Public Use
  Company Number: US-009507513-1508USA006835

PATIENT
  Age: 90 Year
  Sex: Male

DRUGS (1)
  1. BELSOMRA [Suspect]
     Active Substance: SUVOREXANT
     Indication: INSOMNIA
     Dosage: ONCE NIGHTLY
     Route: 048
     Dates: start: 20150611, end: 20150902

REACTIONS (8)
  - Confusional state [Recovered/Resolved]
  - Amnesia [Unknown]
  - Activities of daily living impaired [Recovered/Resolved]
  - Muscular weakness [Unknown]
  - Movement disorder [Unknown]
  - Fall [Unknown]
  - Agitation [Unknown]
  - Hallucination [Recovered/Resolved]

NARRATIVE: CASE EVENT DATE: 2015
